FAERS Safety Report 24761901 (Version 3)
Quarter: 2025Q2

REPORT INFORMATION
  Report Type: Spontaneous
  Country: US (occurrence: US)
  Receive Date: 20241221
  Receipt Date: 20250520
  Transmission Date: 20250717
  Serious: No
  Sender: SANOFI AVENTIS
  Company Number: US-SA-2024SA374788

PATIENT
  Age: 50 Year
  Sex: Female

DRUGS (2)
  1. DUPIXENT [Suspect]
     Active Substance: DUPILUMAB
     Indication: Oesophagitis
     Dosage: 300 MG, QW
     Route: 058
     Dates: start: 202307, end: 20250114
  2. DUPIXENT [Suspect]
     Active Substance: DUPILUMAB
     Indication: Eosinophilic oesophagitis

REACTIONS (10)
  - Fungal infection [Recovering/Resolving]
  - Inflammation [Recovering/Resolving]
  - Dysphagia [Recovered/Resolved]
  - Bowel movement irregularity [Unknown]
  - Dysuria [Recovered/Resolved]
  - Mobility decreased [Unknown]
  - Post procedural complication [Unknown]
  - Urinary bladder suspension [Unknown]
  - Hysterectomy [Unknown]
  - Product use in unapproved indication [Unknown]

NARRATIVE: CASE EVENT DATE: 20230701
